FAERS Safety Report 5071342-4 (Version None)
Quarter: 2006Q3

REPORT INFORMATION
  Report Type: 
  Country: None (occurrence: None)
  Receive Date: 20060804
  Receipt Date: 20051222
  Transmission Date: 20061208
  Serious: No
  Sender: FDA-Public Use
  Company Number: US-AMGEN-US162645

PATIENT
  Sex: Female

DRUGS (11)
  1. ARANESP [Suspect]
     Indication: RENAL FAILURE CHRONIC
     Route: 058
     Dates: start: 20050801, end: 20051201
  2. AMBIEN [Concomitant]
  3. INSULIN [Concomitant]
  4. PLAVIX [Concomitant]
  5. NIFEDIPINE [Concomitant]
  6. HYDRALAZINE HYDROCHLORIDE [Concomitant]
  7. PERCOCET [Concomitant]
  8. LIPITOR [Concomitant]
  9. GABAPENTIN [Concomitant]
  10. TRAMADOL HCL [Concomitant]
  11. SODIUM CITRATE [Concomitant]

REACTIONS (7)
  - AGGRESSION [None]
  - ANOREXIA [None]
  - ANXIETY [None]
  - ASTHENIA [None]
  - DIZZINESS [None]
  - FATIGUE [None]
  - FEELING DRUNK [None]
